FAERS Safety Report 14093067 (Version 1)
Quarter: 2017Q4

REPORT INFORMATION
  Report Type: Report from Study
  Country: None (occurrence: CO)
  Receive Date: 20171016
  Receipt Date: 20171016
  Transmission Date: 20180321
  Serious: Yes (Hospitalization, Other)
  Sender: FDA-Public Use
  Company Number: CO-ABBVIE-17S-036-2131422-00

PATIENT
  Age: 1 Month
  Sex: Female
  Weight: 5 kg

DRUGS (1)
  1. SYNAGIS [Suspect]
     Active Substance: PALIVIZUMAB
     Indication: HEART DISEASE CONGENITAL
     Route: 030
     Dates: start: 20170728, end: 20170728

REACTIONS (5)
  - Bronchiolitis [Recovered/Resolved]
  - Inflammation [Recovered/Resolved]
  - Postoperative wound infection [Recovered/Resolved]
  - Erythema [Recovered/Resolved]
  - Congenital cardiovascular anomaly [Recovered/Resolved]

NARRATIVE: CASE EVENT DATE: 20170910
